FAERS Safety Report 10079620 (Version 1)
Quarter: 2014Q2

REPORT INFORMATION
  Report Type: Spontaneous
  Country: US (occurrence: US)
  Receive Date: 20140415
  Receipt Date: 20140415
  Transmission Date: 20141212
  Serious: No
  Sender: FDA-Public Use
  Company Number: US-BAUSCH-BL-2014-001324

PATIENT
  Age: 71 Year
  Sex: Female

DRUGS (3)
  1. LOTEMAX (LOTEPREDNOL ETABONATE OPHTHALMIC GEL 0.5%) [Suspect]
     Indication: POST PROCEDURAL COMPLICATION
     Dosage: ONE DROP IN LEFT EYE
     Route: 047
     Dates: start: 2013
  2. LATANOPROST OPTHALMIC SOLUTION [Concomitant]
     Indication: PRODUCT USED FOR UNKNOWN INDICATION
  3. ALPHAGAN [Concomitant]
     Indication: PRODUCT USED FOR UNKNOWN INDICATION

REACTIONS (3)
  - Ocular hyperaemia [Recovering/Resolving]
  - Eye irritation [Recovering/Resolving]
  - Vision blurred [Recovering/Resolving]
